FAERS Safety Report 12177342 (Version 1)
Quarter: 2016Q1

REPORT INFORMATION
  Report Type: Spontaneous
  Country: US (occurrence: US)
  Receive Date: 20160314
  Receipt Date: 20160314
  Transmission Date: 20160526
  Serious: No
  Sender: FDA-Public Use
  Company Number: US-BAYER-2016-044716

PATIENT
  Age: 32 Year
  Sex: Female

DRUGS (1)
  1. MIRENA [Suspect]
     Active Substance: LEVONORGESTREL
     Indication: CONTRACEPTION
     Dosage: 20 MCG/24HR, CONT
     Route: 015
     Dates: start: 20160225, end: 20160225

REACTIONS (4)
  - Presyncope [None]
  - Complication of device insertion [None]
  - Device difficult to use [None]
  - Procedural vomiting [None]

NARRATIVE: CASE EVENT DATE: 20160225
